FAERS Safety Report 13263990 (Version 1)
Quarter: 2017Q1

REPORT INFORMATION
  Report Type: Spontaneous
  Country: US (occurrence: US)
  Receive Date: 20170222
  Receipt Date: 20170222
  Transmission Date: 20170428
  Serious: Yes (Death)
  Sender: FDA-Public Use
  Company Number: None

PATIENT
  Age: 83 Year
  Sex: Female
  Weight: 54 kg

DRUGS (2)
  1. WARFARIN [Suspect]
     Active Substance: WARFARIN
     Indication: ATRIAL FIBRILLATION
     Dosage: 3 MG ORAL DAILY ON MON, FRI
     Route: 048
  2. WARFARIN [Suspect]
     Active Substance: WARFARIN
     Indication: ATRIAL FIBRILLATION
     Dosage: 2 MG ORAL DAILY ON TWTHSS?
     Route: 048

REACTIONS (10)
  - International normalised ratio increased [None]
  - Epistaxis [None]
  - Gingival bleeding [None]
  - Haemorrhage [None]
  - Anaemia [None]
  - Melaena [None]
  - Blood pressure decreased [None]
  - Rectal haemorrhage [None]
  - Renal disorder [None]
  - Shock haemorrhagic [None]

NARRATIVE: CASE EVENT DATE: 20160811
